FAERS Safety Report 19388980 (Version 1)
Quarter: 2021Q2

REPORT INFORMATION
  Report Type: Spontaneous
  Country: CA (occurrence: CA)
  Receive Date: 20210607
  Receipt Date: 20210607
  Transmission Date: 20210717
  Serious: Yes (Disabling, Other)
  Sender: FDA-Public Use
  Company Number: CA-JNJFOC-20210603636

PATIENT
  Sex: Female

DRUGS (1)
  1. REMICADE [Suspect]
     Active Substance: INFLIXIMAB
     Indication: CROHN^S DISEASE
     Route: 042

REACTIONS (8)
  - Coma [Unknown]
  - Pulmonary embolism [Unknown]
  - Rectal haemorrhage [Unknown]
  - Gait inability [Unknown]
  - Cerebrovascular accident [Unknown]
  - Paralysis [Unknown]
  - Pneumonia [Unknown]
  - Guillain-Barre syndrome [Unknown]
